FAERS Safety Report 24204662 (Version 1)
Quarter: 2024Q3

REPORT INFORMATION
  Report Type: Spontaneous
  Country: IN (occurrence: IN)
  Receive Date: 20240813
  Receipt Date: 20240813
  Transmission Date: 20241017
  Serious: Yes (Death)
  Sender: PFIZER
  Company Number: IN-PFIZER INC-PV202200090256

PATIENT
  Age: 79 Year
  Sex: Female

DRUGS (17)
  1. PALBOCICLIB [Suspect]
     Active Substance: PALBOCICLIB
     Indication: Breast cancer female
     Dosage: 75 MG, CYCLIC (OD, 14 DAYS IN A MONTH FOR 2 MONTHS)
     Route: 048
  2. PALBOCICLIB [Suspect]
     Active Substance: PALBOCICLIB
     Dosage: 75 MG, CYCLIC (OD FOR 14 DAYS IN EVERY 28 DAYS)
     Route: 048
  3. PALBOCICLIB [Suspect]
     Active Substance: PALBOCICLIB
     Dosage: 75 MG, DAILY
     Route: 048
  4. LETROZOLE [Concomitant]
     Active Substance: LETROZOLE
     Dosage: 2.5 MG, 1X/DAY OD (X 2 MONTHS)
  5. LETROZOLE [Concomitant]
     Active Substance: LETROZOLE
     Dosage: 2.5 MG, 1X/DAY OD (X 28 DAYS)
  6. BEPLEX FORTE [ASCORBIC ACID;BIOTIN;CALCIUM PANTOTHENATE;FOLIC ACID;NIC [Concomitant]
     Dosage: UNK, 1X/DAY OD (X 2 MONTHS)
  7. BEPLEX FORTE [ASCORBIC ACID;BIOTIN;CALCIUM PANTOTHENATE;FOLIC ACID;NIC [Concomitant]
     Dosage: UNK, 1X/DAY OD (X 28 DAYS)
  8. OMEZ D [Concomitant]
     Dosage: UNK, 1X/DAY OD (X 2 MONTHS)
  9. OMEZ D [Concomitant]
     Dosage: UNK, 1X/DAY OD (X 28 DAYS)
  10. NUROKIND PLUS [DEXPANTHENOL;MECOBALAMIN;NICOTINAMIDE;PYRIDOXINE HYDROC [Concomitant]
     Dosage: UNK, 1X/DAY OD (X 2 MONTHS)
  11. NUROKIND PLUS [DEXPANTHENOL;MECOBALAMIN;NICOTINAMIDE;PYRIDOXINE HYDROC [Concomitant]
     Dosage: UNK, 1X/DAY OD (X 28 DAYS)
  12. DENOSUMAB [Concomitant]
     Active Substance: DENOSUMAB
     Dosage: 60 MG, MONTHLY
     Route: 058
  13. ZOLEDRONIC ACID [Concomitant]
     Active Substance: ZOLEDRONIC ACID
     Dosage: 4MG + NS 100ML OVER 20 MIN ONCE A MONTH
  14. SHELCAL XT [Concomitant]
     Dosage: UNK, 1X/DAY (X 28 DAYS)
  15. ENSURE [Concomitant]
     Active Substance: AMINO ACIDS\DEXTROSE\ELECTROLYTES NOS\SOYBEAN OIL\VITAMINS
     Dosage: POWDER 4 TSF, 2X/DAY (X 28 DAYS)
  16. CHOLECALCIFEROL [Concomitant]
     Active Substance: CHOLECALCIFEROL
     Dosage: 60000 IU, WEEKLY (X 28 DAYS)
  17. VITCOFOL [FOLIC ACID;NICOTINAMIDE;VITAMIN B12 NOS] [Concomitant]
     Dosage: 2 CC 1M TWICE A WEEKX6 THEN EVERY 2 MONTHS

REACTIONS (2)
  - Death [Fatal]
  - Off label use [Unknown]

NARRATIVE: CASE EVENT DATE: 20240807
